FAERS Safety Report 14927282 (Version 2)
Quarter: 2018Q2

REPORT INFORMATION
  Report Type: Spontaneous
  Country: US (occurrence: US)
  Receive Date: 20180523
  Receipt Date: 20180530
  Transmission Date: 20180711
  Serious: No
  Sender: FDA-Public Use
  Company Number: US-PFIZER INC-2018100724

PATIENT
  Age: 64 Year
  Sex: Female

DRUGS (3)
  1. ENBREL [Suspect]
     Active Substance: ETANERCEPT
     Dosage: 25 MG, 2X/WEEK (TWICE A WEEK)
     Route: 058
  2. ENBREL [Suspect]
     Active Substance: ETANERCEPT
     Dosage: UNK
  3. XELJANZ XR [Suspect]
     Active Substance: TOFACITINIB CITRATE
     Dosage: 11 MG, 1X/DAY
     Route: 048

REACTIONS (7)
  - Joint range of motion decreased [Unknown]
  - Low density lipoprotein increased [Unknown]
  - Asthenia [Unknown]
  - Musculoskeletal pain [Unknown]
  - Arthralgia [Unknown]
  - Gait disturbance [Unknown]
  - Back pain [Unknown]

NARRATIVE: CASE EVENT DATE: 201802
